FAERS Safety Report 10871460 (Version 1)
Quarter: 2015Q1

REPORT INFORMATION
  Report Type: Spontaneous
  Country: IN (occurrence: None)
  Receive Date: 20150223
  Receipt Date: 20150223
  Transmission Date: 20150721
  Serious: Yes (Life-Threatening, Hospitalization, Other)
  Sender: FDA-Public Use
  Company Number: IN-2015VAL000148

PATIENT
  Age: 20 Year
  Sex: Female

DRUGS (1)
  1. CARBAMAZEPINE (CARBAMAZEPINE) UNKNOWN, 20MG [Suspect]
     Active Substance: CARBAMAZEPINE
     Indication: PRODUCT USED FOR UNKNOWN INDICATION
     Dosage: 4000 MG (200 MG X 20 TABLETS)

REACTIONS (8)
  - Hyporeflexia [None]
  - Exposure during pregnancy [None]
  - Overdose [None]
  - Hypoglycaemia [None]
  - Shock [None]
  - Depressed level of consciousness [None]
  - Mydriasis [None]
  - Haemoglobin decreased [None]
